FAERS Safety Report 18463886 (Version 3)
Quarter: 2023Q1

REPORT INFORMATION
  Report Type: Report from Study
  Country: US (occurrence: US)
  Receive Date: 20201104
  Receipt Date: 20230123
  Transmission Date: 20230417
  Serious: No
  Sender: FDA-Public Use
  Company Number: US-NOVARTISPH-NVSC2020US291499

PATIENT
  Sex: Female

DRUGS (1)
  1. ENTRESTO [Suspect]
     Active Substance: SACUBITRIL\VALSARTAN
     Indication: Product used for unknown indication
     Dosage: 50 MG, BID
     Route: 048
     Dates: start: 20201013

REACTIONS (5)
  - Presyncope [Unknown]
  - Feeling hot [Unknown]
  - Cold sweat [Unknown]
  - Blood pressure abnormal [Unknown]
  - Eating disorder [Unknown]
